FAERS Safety Report 15491025 (Version 1)
Quarter: 2018Q4

REPORT INFORMATION
  Report Type: Spontaneous
  Country: CA (occurrence: CA)
  Receive Date: 20181012
  Receipt Date: 20181012
  Transmission Date: 20190205
  Serious: Yes (Other)
  Sender: FDA-Public Use
  Company Number: CA-CONCORDIA PHARMACEUTICALS INC.-GSH201805-001673

PATIENT
  Sex: Male

DRUGS (8)
  1. HYDROXYCHLOROQUINE [Suspect]
     Active Substance: HYDROXYCHLOROQUINE
     Indication: PRODUCT USED FOR UNKNOWN INDICATION
     Route: 065
  2. CIMZIA [Concomitant]
     Active Substance: CERTOLIZUMAB PEGOL
     Dates: start: 201409, end: 201501
  3. TOFACITINIB [Concomitant]
     Active Substance: TOFACITINIB
  4. ORENCIA [Concomitant]
     Active Substance: ABATACEPT
     Dates: start: 201507, end: 201512
  5. METHOTREXATE. [Suspect]
     Active Substance: METHOTREXATE
     Indication: RHEUMATOID ARTHRITIS
     Route: 065
     Dates: start: 20111101
  6. REMICADE [Concomitant]
     Active Substance: INFLIXIMAB
     Dates: start: 20150201, end: 20150527
  7. ACTEMRA [Concomitant]
     Active Substance: TOCILIZUMAB
     Dates: start: 201605, end: 201703
  8. ENBREL [Suspect]
     Active Substance: ETANERCEPT
     Indication: RHEUMATOID ARTHRITIS
     Route: 065
     Dates: start: 201209, end: 201409

REACTIONS (5)
  - Drug intolerance [Unknown]
  - Headache [Unknown]
  - Loss of personal independence in daily activities [Unknown]
  - Treatment failure [Unknown]
  - Rheumatoid arthritis [Unknown]
